FAERS Safety Report 6408660-0 (Version None)
Quarter: 2009Q4

REPORT INFORMATION
  Report Type: 
  Country: None (occurrence: None)
  Receive Date: 20091019
  Receipt Date: 20091002
  Transmission Date: 20100525
  Serious: Yes (Hospitalization)
  Sender: FDA-Public Use
  Company Number: 2009SP002643

PATIENT
  Age: 55 Year
  Sex: Female

DRUGS (4)
  1. ALVESCO [Suspect]
     Indication: ASTHMA
     Dosage: 200 UG;BID;INHALATION
     Route: 055
     Dates: start: 20090527
  2. VENTOLIN [Concomitant]
  3. SEREVENT [Concomitant]
  4. UNIPHYL [Concomitant]

REACTIONS (2)
  - ASTHMA [None]
  - BRONCHITIS [None]
